FAERS Safety Report 14205981 (Version 15)
Quarter: 2018Q4

REPORT INFORMATION
  Report Type: Report from Study
  Country: US (occurrence: US)
  Receive Date: 20171120
  Receipt Date: 20181016
  Transmission Date: 20190204
  Serious: Yes (Death, Hospitalization)
  Sender: FDA-Public Use
  Company Number: US-ACTELION-A-US2017-162202

PATIENT
  Age: 79 Year
  Sex: Female
  Weight: 52.15 kg

DRUGS (6)
  1. UPTRAVI [Suspect]
     Active Substance: SELEXIPAG
     Dosage: 200 MCG, BID
     Route: 048
  2. ADCIRCA [Concomitant]
     Active Substance: TADALAFIL
  3. UPTRAVI [Suspect]
     Active Substance: SELEXIPAG
     Dosage: 400 MCG, BID
     Route: 048
  4. UPTRAVI [Suspect]
     Active Substance: SELEXIPAG
     Indication: PULMONARY HYPERTENSION
     Dosage: 800 MCG, BID
     Route: 048
  5. UPTRAVI [Suspect]
     Active Substance: SELEXIPAG
     Dosage: 600 MCG, BID
     Route: 048
  6. OPSUMIT [Suspect]
     Active Substance: MACITENTAN
     Indication: PULMONARY HYPERTENSION
     Dosage: 10 MG, QD
     Route: 048

REACTIONS (30)
  - Death [Fatal]
  - Pulmonary arterial hypertension [Unknown]
  - Oxygen saturation decreased [Unknown]
  - Influenza like illness [Unknown]
  - Pain [Unknown]
  - Urinary tract infection [Unknown]
  - Gastrointestinal disorder [Recovering/Resolving]
  - Dehydration [Unknown]
  - Unevaluable event [Recovering/Resolving]
  - Asthenia [Recovering/Resolving]
  - Swelling [Unknown]
  - Dyspnoea [Unknown]
  - Pneumonia [Unknown]
  - Lethargy [Unknown]
  - Thrombosis [Unknown]
  - Diarrhoea [Recovering/Resolving]
  - Vomiting [Recovering/Resolving]
  - Decreased appetite [Unknown]
  - Tinnitus [Recovered/Resolved]
  - Upper respiratory tract infection [Unknown]
  - Haematemesis [Unknown]
  - Gastrointestinal haemorrhage [Unknown]
  - Nausea [Unknown]
  - Pain in jaw [Unknown]
  - Headache [Unknown]
  - Malaise [Unknown]
  - Abdominal discomfort [Unknown]
  - Product administration error [Unknown]
  - Fatigue [Unknown]
  - Product dose omission [Unknown]

NARRATIVE: CASE EVENT DATE: 20180118
